FAERS Safety Report 14522138 (Version 11)
Quarter: 2020Q1

REPORT INFORMATION
  Report Type: Report from Study
  Country: None (occurrence: GB)
  Receive Date: 20180212
  Receipt Date: 20200128
  Transmission Date: 20200409
  Serious: Yes (Hospitalization, Other)
  Sender: FDA-Public Use
  Company Number: GB-ABBVIE-18P-167-2252434-00

PATIENT
  Age: 16 Year
  Sex: Female
  Weight: 51.6 kg

DRUGS (23)
  1. BACLOFEN. [Concomitant]
     Active Substance: BACLOFEN
     Dosage: 6AM AND 12 NOON
     Route: 048
     Dates: start: 20170509, end: 20170515
  2. BACLOFEN. [Concomitant]
     Active Substance: BACLOFEN
     Dosage: 18.00PM AND 22.00PM
     Route: 048
     Dates: start: 20170509, end: 20170514
  3. DICLOVERINE HYDROCHOLORIDE [Concomitant]
     Indication: GASTROINTESTINAL PAIN
     Route: 050
     Dates: start: 20171212
  4. HYDROCORTISONE. [Concomitant]
     Active Substance: HYDROCORTISONE
     Indication: CATHETER SITE INFLAMMATION
     Route: 061
     Dates: start: 20171212, end: 20171222
  5. AZATHIOPRINE. [Suspect]
     Active Substance: AZATHIOPRINE
     Route: 048
     Dates: start: 20171020
  6. HUMIRA [Suspect]
     Active Substance: ADALIMUMAB
     Route: 058
     Dates: start: 20170613, end: 20170620
  7. BACLOFEN. [Concomitant]
     Active Substance: BACLOFEN
     Indication: MUSCLE RELAXANT THERAPY
     Route: 048
     Dates: start: 20170307, end: 20170505
  8. BACLOFEN. [Concomitant]
     Active Substance: BACLOFEN
     Route: 048
     Dates: start: 20170505, end: 20170509
  9. DIAZEPAM. [Concomitant]
     Active Substance: DIAZEPAM
     Indication: DYSTONIA
     Route: 040
     Dates: start: 20170721, end: 20170722
  10. CHLORAL HYDRATE [Concomitant]
     Active Substance: CHLORAL HYDRATE
     Indication: AGITATION
     Dosage: 500-1000 MG
     Route: 054
     Dates: start: 20170721, end: 20171223
  11. HUMIRA [Suspect]
     Active Substance: ADALIMUMAB
     Route: 058
     Dates: start: 20170221, end: 20170612
  12. HUMIRA [Suspect]
     Active Substance: ADALIMUMAB
     Route: 058
     Dates: start: 20170808, end: 20170921
  13. HUMIRA [Suspect]
     Active Substance: ADALIMUMAB
     Route: 058
     Dates: start: 20170927, end: 20171018
  14. HUMIRA [Suspect]
     Active Substance: ADALIMUMAB
     Route: 058
     Dates: start: 20171025, end: 20171206
  15. HUMIRA [Suspect]
     Active Substance: ADALIMUMAB
     Route: 058
     Dates: start: 20171220, end: 20180103
  16. AZATHIOPRINE. [Suspect]
     Active Substance: AZATHIOPRINE
     Indication: CROHN^S DISEASE
     Route: 065
     Dates: start: 20160601, end: 20170129
  17. HUMIRA [Suspect]
     Active Substance: ADALIMUMAB
     Route: 058
     Dates: start: 20180131, end: 20180228
  18. BACLOFEN. [Concomitant]
     Active Substance: BACLOFEN
     Route: 048
     Dates: start: 20170515
  19. HUMIRA [Suspect]
     Active Substance: ADALIMUMAB
     Indication: CROHN^S DISEASE
     Route: 058
     Dates: start: 20151011, end: 20170118
  20. OMEPRAZOLE. [Concomitant]
     Active Substance: OMEPRAZOLE
     Indication: CROHN^S DISEASE
     Dates: start: 20170728, end: 20171226
  21. HYDROCORTISONE. [Concomitant]
     Active Substance: HYDROCORTISONE
     Indication: DERMATITIS
     Route: 061
  22. DIAZEPAM. [Concomitant]
     Active Substance: DIAZEPAM
     Indication: DYSTONIA
     Dosage: 2.5-7.5 MG, ONCE A DAY UP TO FOUR TIMES DAILY
     Route: 040
     Dates: start: 20171221, end: 20180115
  23. CHLORAL HYDRATE [Concomitant]
     Active Substance: CHLORAL HYDRATE
     Indication: ANXIETY
     Route: 048
     Dates: start: 20171227, end: 20180328

REACTIONS (2)
  - Small intestinal obstruction [Recovered/Resolved]
  - Device related sepsis [Recovered/Resolved]

NARRATIVE: CASE EVENT DATE: 20171222
